FAERS Safety Report 19055906 (Version 2)
Quarter: 2021Q4

REPORT INFORMATION
  Report Type: Spontaneous
  Country: US (occurrence: US)
  Receive Date: 20210325
  Receipt Date: 20211207
  Transmission Date: 20220303
  Serious: No
  Sender: FDA-Public Use
  Company Number: US-BOEHRINGERINGELHEIM-2021-BI-091928

PATIENT
  Age: 67 Year
  Sex: Female

DRUGS (2)
  1. GILOTRIF [Suspect]
     Active Substance: AFATINIB
     Indication: EGFR gene mutation
     Dosage: 20 MG ONCE DAILY
     Route: 065
     Dates: start: 201702
  2. GILOTRIF [Suspect]
     Active Substance: AFATINIB
     Indication: Lung neoplasm malignant

REACTIONS (3)
  - Rash macular [Unknown]
  - Underdose [Not Recovered/Not Resolved]
  - Osteoporosis [Not Recovered/Not Resolved]

NARRATIVE: CASE EVENT DATE: 20170201
